FAERS Safety Report 9893724 (Version 2)
Quarter: 2014Q1

REPORT INFORMATION
  Report Type: Spontaneous
  Country: US (occurrence: US)
  Receive Date: 20140213
  Receipt Date: 20140213
  Transmission Date: 20141002
  Serious: Yes (Disabling)
  Sender: FDA-Public Use
  Company Number: PHEH2014US000942

PATIENT
  Age: 80 Year
  Sex: Female

DRUGS (6)
  1. TASIGNA [Suspect]
     Indication: CHRONIC MYELOID LEUKAEMIA
     Dosage: 150 MG, UNK
  2. CHLORDIAZEPOXIDE [Concomitant]
     Dosage: 10 MG, QD
  3. DILTIAZEM [Concomitant]
     Dosage: 120/12, QD
  4. METOPROLOL [Concomitant]
     Dosage: 25 MG, QD
  5. ASPIRIN [Concomitant]
     Dosage: 325 MG, QD
  6. PREDNISONE [Concomitant]
     Dosage: 10 MG, BID
     Route: 048

REACTIONS (2)
  - Neuralgia [Recovered/Resolved]
  - Pelvic pain [Unknown]
